FAERS Safety Report 7406989-0 (Version None)
Quarter: 2011Q2

REPORT INFORMATION
  Report Type: 
  Country: None (occurrence: None)
  Receive Date: 20110411
  Receipt Date: 20110406
  Transmission Date: 20111010
  Serious: Yes (Other)
  Sender: FDA-Public Use
  Company Number: US-PFIZER INC-2011062665

PATIENT
  Sex: Male

DRUGS (8)
  1. WARFARIN SODIUM [Suspect]
     Indication: THROMBOSIS
     Dosage: 5 MG, ON MONDAY AND TUESDAY
     Dates: start: 20110105
  2. WARFARIN SODIUM [Suspect]
     Dosage: 7.5 MG, UNK
  3. LISINOPRIL [Suspect]
     Dosage: ALTERNATE DAY
     Dates: start: 20110303
  4. VERAPAMIL HCL [Suspect]
     Indication: BLOOD PRESSURE
     Dosage: UNK
     Dates: end: 20110303
  5. LISINOPRIL [Suspect]
     Indication: BLOOD PRESSURE
     Dosage: ONCE DAILY
     Dates: end: 20110303
  6. FUROSEMIDE [Suspect]
     Indication: BLOOD PRESSURE
     Dosage: UNK
     Dates: end: 20110303
  7. CILOSTAZOL [Concomitant]
     Indication: PERIPHERAL ARTERIAL OCCLUSIVE DISEASE
     Dosage: UNK
  8. METOPROLOL [Concomitant]
     Dosage: UNK

REACTIONS (4)
  - HYPOTENSION [None]
  - DYSPNOEA [None]
  - WEIGHT DECREASED [None]
  - DIZZINESS POSTURAL [None]
